FAERS Safety Report 24242617 (Version 1)
Quarter: 2024Q3

REPORT INFORMATION
  Report Type: Spontaneous
  Country: DE (occurrence: DE)
  Receive Date: 20240823
  Receipt Date: 20240823
  Transmission Date: 20241017
  Serious: Yes (Death, Other)
  Sender: JOHNSON AND JOHNSON
  Company Number: DE-002147023-NVSC2024DE163209

PATIENT
  Age: 17 Year
  Sex: Male

DRUGS (5)
  1. TRAMADOL HYDROCHLORIDE [Suspect]
     Active Substance: TRAMADOL HYDROCHLORIDE
     Indication: Suicide attempt
     Dosage: UNK
     Route: 065
  2. LOPERAMIDE HYDROCHLORIDE [Suspect]
     Active Substance: LOPERAMIDE HYDROCHLORIDE
     Indication: Suicide attempt
     Dosage: UNK
     Route: 065
  3. DICLOFENAC [Suspect]
     Active Substance: DICLOFENAC
     Indication: Suicide attempt
     Dosage: UNK
     Route: 065
  4. DICLOFENAC [Suspect]
     Active Substance: DICLOFENAC
     Route: 065
  5. RANITIDINE [Suspect]
     Active Substance: RANITIDINE
     Indication: Suicide attempt
     Dosage: UNK
     Route: 065

REACTIONS (4)
  - Intentional overdose [Unknown]
  - Toxicity to various agents [Fatal]
  - Completed suicide [Fatal]
  - Intentional product misuse [Fatal]
